FAERS Safety Report 7121448-0 (Version None)
Quarter: 2010Q4

REPORT INFORMATION
  Report Type: 
  Country: None (occurrence: None)
  Receive Date: 20101124
  Receipt Date: 20101112
  Transmission Date: 20110411
  Serious: Yes (Death)
  Sender: FDA-Public Use
  Company Number: JP-SANOFI-AVENTIS-2010SA059299

PATIENT
  Age: 67 Year
  Sex: Male

DRUGS (10)
  1. ELPLAT [Suspect]
     Indication: RECTAL CANCER
     Route: 041
     Dates: start: 20100512, end: 20100512
  2. ELPLAT [Suspect]
     Route: 041
     Dates: start: 20100930, end: 20100930
  3. CALCIUM LEVOFOLINATE [Suspect]
     Indication: RECTAL CANCER
     Route: 041
     Dates: start: 20100512, end: 20100512
  4. CALCIUM LEVOFOLINATE [Suspect]
     Route: 041
     Dates: start: 20100930, end: 20100930
  5. AVASTIN [Suspect]
     Indication: RECTAL CANCER
     Route: 041
     Dates: start: 20100707, end: 20100707
  6. AVASTIN [Suspect]
     Route: 041
     Dates: start: 20100930, end: 20100930
  7. 5-FU [Concomitant]
     Indication: RECTAL CANCER
     Route: 040
     Dates: start: 20100512, end: 20100512
  8. 5-FU [Concomitant]
     Route: 041
     Dates: start: 20100512, end: 20100512
  9. 5-FU [Concomitant]
     Route: 040
  10. 5-FU [Concomitant]
     Route: 041

REACTIONS (2)
  - NEUTROPENIA [None]
  - SUDDEN DEATH [None]
